FAERS Safety Report 7812366-0 (Version None)
Quarter: 2011Q4

REPORT INFORMATION
  Report Type: 
  Country: None (occurrence: None)
  Receive Date: 20111013
  Receipt Date: 20111005
  Transmission Date: 20120403
  Serious: Yes (Hospitalization)
  Sender: FDA-Public Use
  Company Number: FR-GLAXOSMITHKLINE-B0752879A

PATIENT
  Sex: Female

DRUGS (6)
  1. MODOPAR [Concomitant]
     Indication: PARKINSON'S DISEASE
     Dosage: 312.5MG FOUR TIMES PER DAY
     Route: 048
     Dates: start: 20110331
  2. NEXIUM [Concomitant]
     Route: 065
  3. REQUIP [Suspect]
     Indication: PARKINSON'S DISEASE
     Dosage: 12MG IN THE MORNING
     Route: 048
     Dates: start: 20110331, end: 20110908
  4. AZILECT [Concomitant]
     Indication: PARKINSON'S DISEASE
     Dosage: 1MG PER DAY
     Route: 048
     Dates: start: 20110331
  5. MYOLASTAN [Concomitant]
     Route: 065
  6. AMITRIPTYLINE HCL [Concomitant]
     Route: 065

REACTIONS (6)
  - HALLUCINATION [None]
  - MOOD ALTERED [None]
  - ABNORMAL BEHAVIOUR [None]
  - DELUSION [None]
  - INCOHERENT [None]
  - PERSECUTORY DELUSION [None]
